FAERS Safety Report 8831471 (Version 3)
Quarter: 2013Q1

REPORT INFORMATION
  Report Type: Spontaneous
  Country: US (occurrence: US)
  Receive Date: 20121008
  Receipt Date: 20130304
  Transmission Date: 20140127
  Serious: Yes (Hospitalization)
  Sender: FDA-Public Use
  Company Number: US-GLAXOSMITHKLINE-A0995785A

PATIENT
  Age: 78 Year
  Sex: Male
  Weight: 118.2 kg

DRUGS (8)
  1. ADVAIR [Suspect]
     Indication: CHRONIC OBSTRUCTIVE PULMONARY DISEASE
     Dosage: 1PUFF TWICE PER DAY
     Route: 055
  2. CARVEDILOL [Suspect]
     Indication: PRODUCT USED FOR UNKNOWN INDICATION
     Dosage: 6.25TAB THREE TIMES PER DAY
     Route: 048
  3. ROPINIROLE [Suspect]
     Indication: RESTLESS LEGS SYNDROME
     Dosage: 1TAB THREE TIMES PER DAY
     Route: 048
  4. WARFARIN [Concomitant]
  5. SIMVASTATIN [Concomitant]
  6. KLOR-CON [Concomitant]
  7. FUROSEMIDE [Concomitant]
  8. ASPIRIN [Concomitant]

REACTIONS (7)
  - Stent placement [Unknown]
  - Pneumonia pseudomonas aeruginosa [Recovering/Resolving]
  - Poor peripheral circulation [Recovering/Resolving]
  - Angiopathy [Recovering/Resolving]
  - Infection [Recovering/Resolving]
  - Muscle disorder [Recovering/Resolving]
  - Impaired healing [Recovering/Resolving]
